FAERS Safety Report 18258307 (Version 2)
Quarter: 2020Q3

REPORT INFORMATION
  Report Type: Spontaneous
  Country: SE (occurrence: SE)
  Receive Date: 20200911
  Receipt Date: 20200917
  Transmission Date: 20201103
  Serious: Yes (Life-Threatening, Hospitalization)
  Sender: FDA-Public Use
  Company Number: SE-TEVA-2020-SE-1825186

PATIENT
  Age: 93 Year
  Sex: Female

DRUGS (13)
  1. MOVICOL [Concomitant]
     Active Substance: POLYETHYLENE GLYCOL 3350\POTASSIUM CHLORIDE\SODIUM BICARBONATE\SODIUM CHLORIDE
  2. IMDUR [Concomitant]
     Active Substance: ISOSORBIDE MONONITRATE
  3. SPARKAL MITE [Interacting]
     Active Substance: AMILORIDE HYDROCHLORIDE
     Dosage: 1 DOSAGE FORM
     Route: 048
     Dates: start: 20090318, end: 20090414
  4. PROVERA [Concomitant]
     Active Substance: MEDROXYPROGESTERONE ACETATE
  5. IMPUGAN [Concomitant]
     Active Substance: FUROSEMIDE
  6. ENALAPRIL [Suspect]
     Active Substance: ENALAPRIL
     Dosage: 20MG
     Route: 048
     Dates: end: 20090414
  7. SPIRONOLAKTON [Interacting]
     Active Substance: SPIRONOLACTONE
     Route: 048
     Dates: end: 20090414
  8. TROMBYL [Concomitant]
     Active Substance: ASPIRIN
  9. ISOPHANE INSULIN [Concomitant]
     Active Substance: INSULIN NOS
  10. NITROLINGUAL [Concomitant]
     Active Substance: NITROGLYCERIN
     Dosage: 0.4 MG/DOSE
     Route: 060
  11. XERODENT [Concomitant]
  12. EMCONCOR [Concomitant]
     Active Substance: BISOPROLOL FUMARATE
  13. ALVEDON [Concomitant]
     Active Substance: ACETAMINOPHEN

REACTIONS (2)
  - Hyperkalaemia [Recovered/Resolved]
  - Drug interaction [Unknown]

NARRATIVE: CASE EVENT DATE: 20090414
